FAERS Safety Report 6103732-2 (Version None)
Quarter: 2009Q1

REPORT INFORMATION
  Report Type: 
  Country: None (occurrence: None)
  Receive Date: 20090305
  Receipt Date: 20090225
  Transmission Date: 20090719
  Serious: Yes (Other)
  Sender: FDA-Public Use
  Company Number: PHHY2009DE03798

PATIENT
  Sex: Male

DRUGS (7)
  1. MYFORTIC [Suspect]
     Indication: CORNEAL TRANSPLANT
     Dosage: 360 MG, BID
     Route: 048
     Dates: start: 20080701
  2. MYFORTIC [Suspect]
     Indication: IMMUNOSUPPRESSION
  3. CORTICOSTEROID NOS [Suspect]
     Indication: CORNEAL TRANSPLANT
     Dosage: UNK
  4. GLAUPAX [Suspect]
     Indication: GLAUCOMA
     Dosage: UNK
     Dates: start: 20080801
  5. GLAUPAX [Suspect]
     Indication: INTRAOCULAR PRESSURE INCREASED
  6. DECORTIN-H [Suspect]
     Indication: IMMUNOSUPPRESSION
     Dosage: 60 MG/D
     Route: 048
     Dates: start: 20080612, end: 20080806
  7. DECORTIN-H [Suspect]
     Indication: CORNEAL TRANSPLANT

REACTIONS (8)
  - GASTROINTESTINAL DISORDER [None]
  - GLAUCOMA [None]
  - HAEMOGLOBIN DECREASED [None]
  - INTRAOCULAR PRESSURE INCREASED [None]
  - INTRAOCULAR PRESSURE TEST ABNORMAL [None]
  - NAUSEA [None]
  - REMOVAL OF TRANSPLANTED ORGAN [None]
  - VOMITING [None]
